FAERS Safety Report 15153463 (Version 2)
Quarter: 2018Q3

REPORT INFORMATION
  Report Type: Spontaneous
  Country: FR (occurrence: FR)
  Receive Date: 20180717
  Receipt Date: 20180802
  Transmission Date: 20181010
  Serious: Yes (Hospitalization)
  Sender: FDA-Public Use
  Company Number: FR-MYLANLABS-2018M1050704

PATIENT
  Age: 55 Year
  Sex: Female

DRUGS (4)
  1. EMEND [Suspect]
     Active Substance: APREPITANT
     Indication: PROPHYLAXIS OF NAUSEA AND VOMITING
     Dosage: INCONNUE
     Route: 048
  2. CARBOPLATIN. [Suspect]
     Active Substance: CARBOPLATIN
     Indication: BREAST CANCER
     Dosage: 460 MG, TOTAL
     Route: 041
     Dates: start: 20180308, end: 20180308
  3. PAMIDRONATE [Suspect]
     Active Substance: PAMIDRONATE DISODIUM
     Indication: HYPERCALCAEMIA
     Dosage: 80 MG, TOTAL
     Route: 041
     Dates: start: 20180308, end: 20180308
  4. GEMCITABINE [Suspect]
     Active Substance: GEMCITABINE\GEMCITABINE HYDROCHLORIDE
     Indication: BREAST CANCER
     Dosage: 1640 MG, TOTAL
     Route: 041
     Dates: start: 20180308, end: 20180308

REACTIONS (3)
  - Metabolic acidosis [Recovering/Resolving]
  - Acute kidney injury [Not Recovered/Not Resolved]
  - Thrombocytopenia [Not Recovered/Not Resolved]

NARRATIVE: CASE EVENT DATE: 20180312
